FAERS Safety Report 8430891-9 (Version None)
Quarter: 2012Q2

REPORT INFORMATION
  Report Type: 
  Country: None (occurrence: None)
  Receive Date: 20120612
  Receipt Date: 20120608
  Transmission Date: 20120825
  Serious: Yes (Hospitalization, Other)
  Sender: FDA-Public Use
  Company Number: US-PFIZER INC-2012017257

PATIENT
  Sex: Female
  Weight: 81.633 kg

DRUGS (6)
  1. LYRICA [Suspect]
     Dosage: 75 MG, 3X/DAY
     Route: 048
     Dates: start: 20090101, end: 20120501
  2. NAPROXEN (ALEVE) [Suspect]
     Indication: PAIN
     Dosage: UNK
     Dates: start: 20120501, end: 20120501
  3. METOPROLOL TARTRATE [Concomitant]
     Indication: HYPERTENSION
     Dosage: 100 MG, DAILY
  4. CYMBALTA [Suspect]
     Dosage: 60 MG, 2X/DAY (120MG DAILY)
     Dates: end: 20110101
  5. LORTAB [Concomitant]
     Indication: INTERVERTEBRAL DISC DEGENERATION
     Dosage: 5/500 MG, UNK
  6. LYRICA [Suspect]
     Indication: FIBROMYALGIA
     Dosage: UNK
     Route: 048
     Dates: start: 20060101

REACTIONS (8)
  - CEREBROVASCULAR ACCIDENT [None]
  - INFLUENZA LIKE ILLNESS [None]
  - BEDRIDDEN [None]
  - GAIT DISTURBANCE [None]
  - ABDOMINAL DISCOMFORT [None]
  - DRUG INEFFECTIVE [None]
  - MUSCULOSKELETAL STIFFNESS [None]
  - PAIN [None]
